FAERS Safety Report 9028978 (Version 2)
Quarter: 2013Q1

REPORT INFORMATION
  Report Type: Report from Study
  Country: US (occurrence: US)
  Receive Date: 20130123
  Receipt Date: 20130315
  Transmission Date: 20140127
  Serious: Yes (Hospitalization)
  Sender: FDA-Public Use
  Company Number: US-BAYER-2012-116971

PATIENT
  Age: 57 Year
  Sex: Female
  Weight: 73.7 kg

DRUGS (12)
  1. REGORAFENIB [Suspect]
     Indication: COLORECTAL CANCER METASTATIC
     Dosage: 160 MG, UNK
     Route: 048
     Dates: start: 20120821, end: 20120911
  2. REGORAFENIB [Suspect]
     Indication: COLORECTAL CANCER METASTATIC
     Dosage: 120 MG, UNK
     Route: 048
     Dates: start: 20120925, end: 20121015
  3. VITAMIN B12 [Concomitant]
     Indication: VITAMIN SUPPLEMENTATION
     Dosage: UNK
     Route: 030
     Dates: start: 2010
  4. XGEVA [Concomitant]
     Indication: BONE DISORDER
     Dosage: UNK
     Route: 030
     Dates: start: 201001
  5. ZYPREXA [Concomitant]
     Indication: ANXIETY
     Dosage: 20 MG DAILY DOSE
     Route: 048
     Dates: start: 2010
  6. MAGNESIUM OXIDE [Concomitant]
     Indication: SUPPLEMENTATION THERAPY
     Dosage: 400 MG DAILY DOSE
     Route: 048
     Dates: start: 2011
  7. ATIVAN [Concomitant]
     Indication: ANXIETY
     Dosage: 0.5 MG, PRN
     Route: 048
     Dates: start: 2011
  8. MORPHINE ER [Concomitant]
     Indication: PAIN
     Dosage: 60 MG DAILY DOSE
     Route: 048
     Dates: start: 20120731
  9. LOVENOX [Concomitant]
     Indication: DEEP VEIN THROMBOSIS
     Dosage: 100 MG DAILY DOSE
     Route: 058
     Dates: start: 20120715
  10. POTASSIUM CHLORIDE [Concomitant]
     Indication: HYPOKALAEMIA
     Dosage: 20 ?G DAILY DOSE
     Route: 048
     Dates: start: 20120919
  11. PHOSPHATE [POTASSIUM BICARBONATE,SODIUM PHOSPHATE MONOBASIC] [Concomitant]
     Indication: HYPOPHOSPHATAEMIA
     Dosage: 1 TAB
     Route: 048
     Dates: start: 20120919
  12. FOLIC ACID [Concomitant]
     Indication: SUPPLEMENTATION THERAPY
     Dosage: 1 MG DAILY DOSE
     Route: 048
     Dates: start: 2008

REACTIONS (1)
  - Hyperthyroidism [Recovered/Resolved]
